FAERS Safety Report 6902868-3 (Version None)
Quarter: 2010Q3

REPORT INFORMATION
  Report Type: 
  Country: None (occurrence: None)
  Receive Date: 20100803
  Receipt Date: 20080612
  Transmission Date: 20110219
  Serious: No
  Sender: FDA-Public Use
  Company Number: US-PFIZER INC-2008043588

PATIENT
  Sex: Female
  Weight: 77.1 kg

DRUGS (4)
  1. LYRICA [Suspect]
     Indication: FIBROMYALGIA
     Route: 048
     Dates: start: 20071130, end: 20080114
  2. FLUOXETINE [Concomitant]
  3. IMITREX [Concomitant]
  4. METHYLTHIOURACIL [Concomitant]

REACTIONS (1)
  - OEDEMA PERIPHERAL [None]
